FAERS Safety Report 17359780 (Version 2)
Quarter: 2020Q1

REPORT INFORMATION
  Report Type: Spontaneous
  Country: JP (occurrence: JP)
  Receive Date: 20200203
  Receipt Date: 20200316
  Transmission Date: 20200409
  Serious: Yes (Hospitalization, Other)
  Sender: FDA-Public Use
  Company Number: JP-TEVA-2020-JP-1180863

PATIENT
  Age: 71 Year
  Sex: Female

DRUGS (35)
  1. BENDAMUSTINE HYDROCHLORIDE. [Suspect]
     Active Substance: BENDAMUSTINE HYDROCHLORIDE
     Dosage: 90 MG/M2X1/DAY, CYCLIC (CYCLE 3)
     Route: 042
     Dates: start: 20190918, end: 20190919
  2. DEXAMETHASONE. [Suspect]
     Active Substance: DEXAMETHASONE
     Dosage: 33 MG, ONCE DAILY (CYCLE 2)
     Route: 041
     Dates: start: 20190821, end: 20190822
  3. AMITRIPTYLINE HYDROCHLORIDE. [Concomitant]
     Active Substance: AMITRIPTYLINE HYDROCHLORIDE
     Indication: DEPENDENCE
     Dosage: 4 DOSAGE FORMS DAILY;
     Route: 048
     Dates: start: 20190711
  4. ALFACALCIDOL [Concomitant]
     Active Substance: ALFACALCIDOL
     Indication: PROPHYLAXIS
     Dosage: 1 DOSAGE FORMS DAILY;
     Route: 048
     Dates: start: 20190711
  5. GRANISETRON HYDROCHLORIDE. [Concomitant]
     Active Substance: GRANISETRON HYDROCHLORIDE
     Dosage: 3 MILLIGRAM DAILY;
     Route: 041
     Dates: start: 20190821, end: 20190822
  6. DIPHENHYDRAMINE HYDROCHLORIDE. [Concomitant]
     Active Substance: DIPHENHYDRAMINE HYDROCHLORIDE
     Indication: PROPHYLAXIS
     Route: 048
     Dates: start: 20190722
  7. APREPITANT. [Concomitant]
     Active Substance: APREPITANT
     Indication: PROPHYLAXIS
     Dosage: 120 MILLIGRAM DAILY; 120 MG, ONCE DAILY (DAY 1 OF ADMINISTRATION OF BENDAMUSTINE HYDROCHLORIDE)
     Route: 048
  8. DAIKENCHUTO [Concomitant]
     Active Substance: HERBALS
     Indication: DEPENDENCE
     Dosage: 2.5GX3PACKAGES/DAY, ONCE DAILY
     Route: 048
     Dates: start: 20190725
  9. DIPHENHYDRAMINE HYDROCHLORIDE. [Concomitant]
     Active Substance: DIPHENHYDRAMINE HYDROCHLORIDE
     Route: 048
     Dates: start: 20191015
  10. LOXOPROFEN SODIUM HYDRATE [Concomitant]
     Active Substance: LOXOPROFEN SODIUM DIHYDRATE
     Dosage: 60 MILLIGRAM DAILY;
     Route: 048
     Dates: start: 20191015
  11. VALACICLOVIR [VALACICLOVIR HYDROCHLORIDE] [Concomitant]
     Indication: PROPHYLAXIS
     Dosage: 500 MILLIGRAM DAILY;
     Route: 048
     Dates: start: 20190722
  12. GRANISETRON HYDROCHLORIDE. [Concomitant]
     Active Substance: GRANISETRON HYDROCHLORIDE
     Indication: PROPHYLAXIS
     Dosage: 3 MILLIGRAM DAILY;
     Route: 041
     Dates: start: 20190723, end: 20190724
  13. GRANISETRON HYDROCHLORIDE. [Concomitant]
     Active Substance: GRANISETRON HYDROCHLORIDE
     Dosage: 3 MILLIGRAM DAILY;
     Route: 041
     Dates: start: 20190918, end: 20190919
  14. BENDAMUSTINE HYDROCHLORIDE. [Suspect]
     Active Substance: BENDAMUSTINE HYDROCHLORIDE
     Indication: LYMPHOPLASMACYTOID LYMPHOMA/IMMUNOCYTOMA
     Dosage: 90 MG/M2X1/DAY, CYCLIC (CYCLE 1)
     Route: 042
     Dates: start: 20190723, end: 20190724
  15. BENDAMUSTINE HYDROCHLORIDE. [Suspect]
     Active Substance: BENDAMUSTINE HYDROCHLORIDE
     Dosage: 90 MG/M2X1/DAY, CYCLIC (CYCLE 2)
     Route: 042
     Dates: start: 20190821, end: 20190822
  16. MAGNESIUM OXIDE. [Concomitant]
     Active Substance: MAGNESIUM OXIDE
     Indication: DEPENDENCE
     Dosage: 3 DOSAGE FORMS DAILY;
     Route: 048
     Dates: start: 20190716
  17. MECOBALAMIN [Concomitant]
     Active Substance: METHYLCOBALAMIN
     Indication: DEPENDENCE
     Dosage: 3 DOSAGE FORMS DAILY;
     Route: 048
     Dates: start: 20190711
  18. DIPHENHYDRAMINE HYDROCHLORIDE. [Concomitant]
     Active Substance: DIPHENHYDRAMINE HYDROCHLORIDE
     Route: 048
     Dates: start: 20190820
  19. MOSAPRIDE CITRATE [Concomitant]
     Active Substance: MOSAPRIDE CITRATE
     Indication: PROPHYLAXIS
     Dosage: 5 MG, THRICE DAILY (7 DAYS FROM ADMINISTRATION OF BENDAMUSTINE HYDROCHLORIDE)
     Route: 048
  20. BENDAMUSTINE HYDROCHLORIDE. [Suspect]
     Active Substance: BENDAMUSTINE HYDROCHLORIDE
     Dosage: 90 MG/M2X1/DAY, CYCLIC (CYCLE 4)
     Route: 042
     Dates: start: 20191016, end: 20191017
  21. RITUXIMAB. [Suspect]
     Active Substance: RITUXIMAB
     Dosage: 375 MG/M2X1/DAY, CYCLIC (CYCLE 3)
     Route: 041
     Dates: start: 20190917
  22. DEXAMETHASONE. [Suspect]
     Active Substance: DEXAMETHASONE
     Dosage: 33 MG, ONCE DAILY (CYCLE 3)
     Route: 041
     Dates: start: 20190918, end: 20190919
  23. DIPHENHYDRAMINE HYDROCHLORIDE. [Concomitant]
     Active Substance: DIPHENHYDRAMINE HYDROCHLORIDE
     Route: 048
     Dates: start: 20190917
  24. LOXOPROFEN SODIUM HYDRATE [Concomitant]
     Active Substance: LOXOPROFEN SODIUM DIHYDRATE
     Dosage: 60 MILLIGRAM DAILY;
     Route: 048
     Dates: start: 20190820
  25. SULFAMETHOXAZOLE AND TRIMETHOPRIM [Concomitant]
     Active Substance: SULFAMETHOXAZOLE\TRIMETHOPRIM
     Indication: PROPHYLAXIS
     Dosage: 1 DOSAGE FORMS DAILY;
     Route: 048
     Dates: start: 20190722
  26. LOXOPROFEN SODIUM HYDRATE [Concomitant]
     Active Substance: LOXOPROFEN SODIUM DIHYDRATE
     Indication: PROPHYLAXIS
     Dosage: 60 MILLIGRAM DAILY;
     Route: 048
     Dates: start: 20190722
  27. LOXOPROFEN SODIUM HYDRATE [Concomitant]
     Active Substance: LOXOPROFEN SODIUM DIHYDRATE
     Dosage: 60 MILLIGRAM DAILY;
     Route: 048
     Dates: start: 20190917
  28. APREPITANT. [Concomitant]
     Active Substance: APREPITANT
     Dosage: 80 MILLIGRAM DAILY; 80 MG, ONCE DAILY (DAY 2 AND 3 OF ADMINISTRATION OF BENDAMUSTINE HYDROCHLORIDE)
     Route: 048
  29. RITUXIMAB. [Suspect]
     Active Substance: RITUXIMAB
     Dosage: 375 MG/M2X1/DAY, CYCLIC (CYCLE 4)
     Route: 041
     Dates: start: 20191015
  30. DEXAMETHASONE. [Suspect]
     Active Substance: DEXAMETHASONE
     Indication: PROPHYLAXIS
     Dosage: 33 MG, ONCE DAILY (CYCLE 1)
     Route: 041
     Dates: start: 20190723, end: 20190724
  31. RITUXIMAB. [Suspect]
     Active Substance: RITUXIMAB
     Indication: LYMPHOPLASMACYTOID LYMPHOMA/IMMUNOCYTOMA
     Dosage: 375 MG/M2X1/DAY, CYCLIC (CYCLE 1)
     Route: 041
     Dates: start: 20190722
  32. RITUXIMAB. [Suspect]
     Active Substance: RITUXIMAB
     Dosage: 375 MG/M2X1/DAY, CYCLIC (CYCLE 2)
     Route: 041
     Dates: start: 20190820
  33. DEXAMETHASONE. [Suspect]
     Active Substance: DEXAMETHASONE
     Dosage: 33 MG, ONCE DAILY (CYCLE 4)
     Route: 041
     Dates: start: 20191016, end: 20191017
  34. MIROGABALIN BESILATE [Concomitant]
     Indication: DEPENDENCE
     Dosage: 6 DOSAGE FORMS DAILY;
     Route: 048
     Dates: start: 20191014, end: 20191209
  35. GRANISETRON HYDROCHLORIDE. [Concomitant]
     Active Substance: GRANISETRON HYDROCHLORIDE
     Dosage: 3 MILLIGRAM DAILY;
     Route: 041
     Dates: start: 20191016, end: 20191017

REACTIONS (1)
  - Tuberculous pleurisy [Recovering/Resolving]

NARRATIVE: CASE EVENT DATE: 20191111
